FAERS Safety Report 9065922 (Version 1)
Quarter: 2013Q1

REPORT INFORMATION
  Report Type: Report from Study
  Country: US (occurrence: US)
  Receive Date: 20130131
  Receipt Date: 20130131
  Transmission Date: 20140127
  Serious: No
  Sender: FDA-Public Use
  Company Number: US-ABBOTT-12P-163-1017194-00

PATIENT
  Age: 65 Year
  Sex: Female

DRUGS (2)
  1. HUMIRA [Suspect]
     Indication: ANKYLOSING SPONDYLITIS
     Dates: start: 2010
  2. ACETAMINOPHEN PM [Concomitant]
     Indication: PRODUCT USED FOR UNKNOWN INDICATION
     Dosage: AT BEDTIME

REACTIONS (2)
  - Drug ineffective [Not Recovered/Not Resolved]
  - Ankylosing spondylitis [Unknown]
